FAERS Safety Report 5295460-0 (Version None)
Quarter: 2007Q2

REPORT INFORMATION
  Report Type: 
  Country: None (occurrence: None)
  Receive Date: 20070412
  Receipt Date: 20070404
  Transmission Date: 20071010
  Serious: Yes (Other)
  Sender: FDA-Public Use
  Company Number: US-PFIZER INC-2007027641

PATIENT
  Age: 66 Year
  Sex: Male
  Weight: 86.2 kg

DRUGS (6)
  1. CAVERJECT [Suspect]
     Indication: ERECTILE DYSFUNCTION
  2. VIAGRA [Suspect]
     Indication: ERECTILE DYSFUNCTION
     Dates: start: 20070101, end: 20070101
  3. COREG [Concomitant]
  4. PLAVIX [Concomitant]
  5. KLONOPIN [Concomitant]
  6. LIPITOR [Concomitant]

REACTIONS (7)
  - ERECTION INCREASED [None]
  - FEELING ABNORMAL [None]
  - FLUSHING [None]
  - PAINFUL ERECTION [None]
  - PEYRONIE'S DISEASE [None]
  - SLUGGISHNESS [None]
  - VISION BLURRED [None]
